FAERS Safety Report 10311808 (Version 1)
Quarter: 2014Q3

REPORT INFORMATION
  Report Type: Spontaneous
  Country: US (occurrence: None)
  Receive Date: 20140715
  Receipt Date: 20140715
  Transmission Date: 20150326
  Serious: Yes (Other)
  Sender: FDA-Public Use
  Company Number: 2014SA092131

PATIENT

DRUGS (2)
  1. GAS-X [Suspect]
     Active Substance: DIMETHICONE
     Indication: SUICIDE ATTEMPT
     Dosage: ONCE
  2. ROLAIDS [Suspect]
     Active Substance: CALCIUM CARBONATE\MAGNESIUM HYDROXIDE
     Indication: SUICIDE ATTEMPT
     Dosage: ONCE

REACTIONS (1)
  - Suicide attempt [None]
